FAERS Safety Report 24221431 (Version 2)
Quarter: 2024Q3

REPORT INFORMATION
  Report Type: Spontaneous
  Country: US (occurrence: US)
  Receive Date: 20240819
  Receipt Date: 20240822
  Transmission Date: 20241017
  Serious: No
  Sender: ABBVIE
  Company Number: US-ABBVIE-5882607

PATIENT
  Age: 12 Year
  Weight: 44 kg

DRUGS (2)
  1. LUPRON [Suspect]
     Active Substance: LEUPROLIDE ACETATE
     Indication: Gender dysphoria
     Route: 030
     Dates: start: 20231208
  2. LEXAPRO [Concomitant]
     Active Substance: ESCITALOPRAM OXALATE
     Indication: Anxiety

REACTIONS (3)
  - Blood testosterone increased [Recovering/Resolving]
  - Drug ineffective [Unknown]
  - Blood follicle stimulating hormone decreased [Unknown]

NARRATIVE: CASE EVENT DATE: 20240605
